FAERS Safety Report 7926967-2 (Version None)
Quarter: 2011Q4

REPORT INFORMATION
  Report Type: 
  Country: None (occurrence: None)
  Receive Date: 20111118
  Receipt Date: 20111110
  Transmission Date: 20120403
  Serious: Yes (Other)
  Sender: FDA-Public Use
  Company Number: AU-JNJFOC-20111012960

PATIENT
  Age: 65 Year
  Sex: Female
  Weight: 65 kg

DRUGS (1)
  1. DURAGESIC-100 [Suspect]
     Indication: PAIN
     Route: 062
     Dates: start: 20100701

REACTIONS (5)
  - HEADACHE [None]
  - MUSCLE STRAIN [None]
  - WITHDRAWAL SYNDROME [None]
  - SYNCOPE [None]
  - MALAISE [None]
